FAERS Safety Report 10308521 (Version 5)
Quarter: 2015Q4

REPORT INFORMATION
  Report Type: Spontaneous
  Country: JP (occurrence: JP)
  Receive Date: 20140716
  Receipt Date: 20151010
  Transmission Date: 20160304
  Serious: Yes (Hospitalization, Other)
  Sender: FDA-Public Use
  Company Number: JP-AMGEN INC.-JPNSP2014043338

PATIENT
  Age: 70 Year
  Sex: Male

DRUGS (6)
  1. CRAVIT [Suspect]
     Active Substance: LEVOFLOXACIN
     Indication: GANGRENE
     Dosage: UNK
     Route: 065
     Dates: start: 20140409, end: 20140424
  2. NESP [Suspect]
     Active Substance: DARBEPOETIN ALFA
     Indication: NEPHROGENIC ANAEMIA
     Dosage: 120 MUG, QWK
     Route: 065
     Dates: start: 20140410
  3. ZYLORIC [Suspect]
     Active Substance: ALLOPURINOL
     Indication: PRODUCT USED FOR UNKNOWN INDICATION
     Dosage: UNK
     Route: 048
     Dates: end: 20140520
  4. ANPLAG [Concomitant]
     Active Substance: SARPOGRELATE
     Dosage: UNK
     Route: 048
     Dates: end: 20140520
  5. NESP [Suspect]
     Active Substance: DARBEPOETIN ALFA
     Indication: DIABETIC NEPHROPATHY
  6. CLOPIDOGREL SULFATE [Suspect]
     Active Substance: CLOPIDOGREL BISULFATE
     Indication: PRODUCT USED FOR UNKNOWN INDICATION
     Dosage: UNK
     Route: 048

REACTIONS (1)
  - Aplasia pure red cell [Recovering/Resolving]
